FAERS Safety Report 4466018-8 (Version None)
Quarter: 2004Q3

REPORT INFORMATION
  Report Type: 
  Country: None (occurrence: None)
  Receive Date: 20040930
  Receipt Date: 20040923
  Transmission Date: 20050211
  Serious: Yes (Hospitalization)
  Sender: FDA-Public Use
  Company Number: 2004PK01579

PATIENT
  Age: 70 Year
  Sex: Female
  Weight: 50 kg

DRUGS (5)
  1. ATACAND PLUS /SCH/ [Suspect]
     Indication: HYPERTENSION
     Dosage: 1 DF DAILY; PO
     Route: 048
  2. ASPIRIN [Suspect]
     Indication: MYOCARDIAL INFARCTION
     Dosage: 100 MG DAILY; PO
     Route: 048
     Dates: end: 20040503
  3. ASPIRIN [Suspect]
     Indication: PROPHYLAXIS
     Dosage: 100 MG DAILY; PO
     Route: 048
     Dates: end: 20040503
  4. TOREM [Suspect]
     Indication: HYPERTENSION
     Dosage: 50 MG DAILY; PO
     Route: 048
  5. METO [Concomitant]

REACTIONS (7)
  - ANAEMIA [None]
  - BLOOD PRESSURE ABNORMAL [None]
  - DIZZINESS [None]
  - GASTRITIS EROSIVE [None]
  - HAEMORRHAGE [None]
  - HYPOVOLAEMIA [None]
  - TACHYCARDIA [None]
